FAERS Safety Report 18558864 (Version 1)
Quarter: 2020Q4

REPORT INFORMATION
  Report Type: Spontaneous
  Country: US (occurrence: US)
  Receive Date: 20201130
  Receipt Date: 20201130
  Transmission Date: 20210114
  Serious: Yes (Other)
  Sender: FDA-Public Use
  Company Number: US-SAMSUNG BIOEPIS-SB-2020-35692

PATIENT

DRUGS (1)
  1. RENFLEXIS [Suspect]
     Active Substance: INFLIXIMAB-ABDA
     Indication: PRODUCT USED FOR UNKNOWN INDICATION
     Dosage: UNKNOWN
     Route: 065

REACTIONS (6)
  - Depression [Unknown]
  - Hypertension [Unknown]
  - Cardiac failure congestive [Not Recovered/Not Resolved]
  - Quality of life decreased [Unknown]
  - Anaphylactic reaction [Unknown]
  - Cardiomyopathy [Not Recovered/Not Resolved]
